FAERS Safety Report 8007699-1 (Version None)
Quarter: 2011Q4

REPORT INFORMATION
  Report Type: 
  Country: None (occurrence: None)
  Receive Date: 20111227
  Receipt Date: 20111109
  Transmission Date: 20120403
  Serious: No
  Sender: FDA-Public Use
  Company Number: US-ABBOTT-11P-163-0872705-00

PATIENT
  Sex: Male
  Weight: 84.898 kg

DRUGS (6)
  1. SIMAVASTATIN [Concomitant]
     Indication: BLOOD CHOLESTEROL
  2. AMLODIPINE [Concomitant]
     Indication: BLOOD PRESSURE
     Route: 048
  3. LEVOTHYROXINE SODIUM [Concomitant]
     Indication: THYROID DISORDER
  4. FINASTERIDE [Concomitant]
     Indication: PRODUCT USED FOR UNKNOWN INDICATION
  5. LUPRON DEPOT [Suspect]
     Indication: PROSTATE CANCER
     Route: 030
     Dates: start: 20110201
  6. ASPIRIN [Concomitant]
     Indication: PRODUCT USED FOR UNKNOWN INDICATION
     Route: 048

REACTIONS (5)
  - JOINT SWELLING [None]
  - PARAESTHESIA [None]
  - OEDEMA PERIPHERAL [None]
  - PAIN IN EXTREMITY [None]
  - SKIN DISCOLOURATION [None]
